FAERS Safety Report 10249481 (Version 3)
Quarter: 2015Q2

REPORT INFORMATION
  Report Type: Spontaneous
  Country: US (occurrence: US)
  Receive Date: 20140620
  Receipt Date: 20150602
  Transmission Date: 20150821
  Serious: Yes (Life-Threatening, Hospitalization, Other)
  Sender: FDA-Public Use
  Company Number: US-009507513-1406USA009653

PATIENT
  Sex: Male
  Weight: 81.63 kg

DRUGS (1)
  1. JANUVIA [Suspect]
     Active Substance: SITAGLIPTIN PHOSPHATE
     Indication: TYPE 2 DIABETES MELLITUS
     Dosage: 100 MG, QD
     Route: 048
     Dates: start: 20110314, end: 20130406

REACTIONS (20)
  - Peritoneal haemorrhage [Unknown]
  - Cardiac pacemaker insertion [Unknown]
  - Aortic valve replacement [Unknown]
  - Hepatic mass [Unknown]
  - Shock haemorrhagic [Unknown]
  - Metastases to lung [Unknown]
  - Ascites [Unknown]
  - Biopsy liver [Unknown]
  - Pancreatic carcinoma metastatic [Unknown]
  - Pancreaticoduodenectomy [Unknown]
  - Subdural haematoma evacuation [Unknown]
  - Enostosis [Unknown]
  - Inguinal hernia [Unknown]
  - Renal cyst [Unknown]
  - Mass [Unknown]
  - Hypothyroidism [Unknown]
  - Osteoarthritis [Unknown]
  - Metastases to lymph nodes [Unknown]
  - Acute myocardial infarction [Unknown]
  - Radiotherapy [Unknown]

NARRATIVE: CASE EVENT DATE: 2013
